FAERS Safety Report 4920752-1 (Version None)
Quarter: 2006Q1

REPORT INFORMATION
  Report Type: 
  Country: None (occurrence: None)
  Receive Date: 20060217
  Receipt Date: 20060206
  Transmission Date: 20060701
  Serious: Yes (Hospitalization)
  Sender: FDA-Public Use
  Company Number: 2005158665

PATIENT
  Age: 62 Year
  Sex: Male
  Weight: 107.9561 kg

DRUGS (8)
  1. SUTENT [Suspect]
     Indication: RENAL CELL CARCINOMA STAGE UNSPECIFIED
     Dosage: 50 MG (50 MG, 1 IN 1 D), ORAL
     Route: 048
     Dates: start: 20051103
  2. ACTOS [Concomitant]
  3. GLYBURIDE [Concomitant]
  4. ZANTAC [Concomitant]
  5. ZOCOR [Concomitant]
  6. PROVENTIL [Concomitant]
  7. ADVIL [Concomitant]
  8. ZOMETA [Concomitant]

REACTIONS (2)
  - ABDOMINAL PAIN [None]
  - DIVERTICULITIS [None]
